FAERS Safety Report 10898668 (Version 1)
Quarter: 2015Q1

REPORT INFORMATION
  Report Type: Spontaneous
  Country: US (occurrence: None)
  Receive Date: 20150303
  Receipt Date: 20150303
  Transmission Date: 20150721
  Serious: Yes (Other)
  Sender: FDA-Public Use
  Company Number: None

PATIENT
  Age: 50 Year
  Sex: Male
  Weight: 67.7 kg

DRUGS (1)
  1. HYDROMORPHONE [Suspect]
     Active Substance: HYDROMORPHONE
     Indication: PAIN
     Route: 030
     Dates: start: 20150225, end: 20150225

REACTIONS (5)
  - Hallucination [None]
  - Unresponsive to stimuli [None]
  - Confusional state [None]
  - Mental status changes [None]
  - Hypokinesia [None]

NARRATIVE: CASE EVENT DATE: 20150225
